FAERS Safety Report 11170306 (Version 2)
Quarter: 2018Q4

REPORT INFORMATION
  Report Type: Spontaneous
  Country: IT (occurrence: IT)
  Receive Date: 20150608
  Receipt Date: 20181112
  Transmission Date: 20190204
  Serious: Yes (Other)
  Sender: FDA-Public Use
  Company Number: IT-ACCORD-031113

PATIENT
  Age: 12 Year
  Sex: Male

DRUGS (7)
  1. ETOPOSIDE. [Suspect]
     Active Substance: ETOPOSIDE
     Indication: PRIMITIVE NEUROECTODERMAL TUMOUR
  2. METHOTREXATE. [Suspect]
     Active Substance: METHOTREXATE
     Indication: PRIMITIVE NEUROECTODERMAL TUMOUR
  3. CYCLOPHOSPHAMIDE/CYCLOPHOSPHAMIDE MONOHYDRATE [Suspect]
     Active Substance: CYCLOPHOSPHAMIDE
     Indication: PRIMITIVE NEUROECTODERMAL TUMOUR
  4. CARBOPLATIN. [Suspect]
     Active Substance: CARBOPLATIN
     Indication: PRODUCT USED FOR UNKNOWN INDICATION
  5. LOMUSTINE. [Suspect]
     Active Substance: LOMUSTINE
     Indication: PRIMITIVE NEUROECTODERMAL TUMOUR
  6. THIOTEPA. [Suspect]
     Active Substance: THIOTEPA
     Indication: PRIMITIVE NEUROECTODERMAL TUMOUR
  7. VINCRISTINE [Suspect]
     Active Substance: VINCRISTINE
     Indication: PRIMITIVE NEUROECTODERMAL TUMOUR

REACTIONS (4)
  - Haematotoxicity [Unknown]
  - Off label use [Unknown]
  - Mucosal inflammation [Unknown]
  - Wernicke^s encephalopathy [Recovering/Resolving]
